FAERS Safety Report 8789775 (Version 1)
Quarter: 2012Q4

REPORT INFORMATION
  Report Type: Spontaneous
  Country: US (occurrence: None)
  Receive Date: 20120911
  Receipt Date: 20120911
  Transmission Date: 20130627
  Serious: No
  Sender: FDA-Public Use
  Company Number: None

PATIENT
  Age: 70 Year
  Sex: Female

DRUGS (1)
  1. NEUPOGEN [Suspect]

REACTIONS (4)
  - Pyrexia [None]
  - Dyspnoea [None]
  - Pneumonia [None]
  - Pulmonary mass [None]
